FAERS Safety Report 17293311 (Version 4)
Quarter: 2024Q2

REPORT INFORMATION
  Report Type: Spontaneous
  Country: PT (occurrence: PT)
  Receive Date: 20200121
  Receipt Date: 20240624
  Transmission Date: 20240715
  Serious: Yes (Hospitalization, Other)
  Sender: FDA-Public Use
  Company Number: PT-BOEHRINGERINGELHEIM-2019-BI-110659

PATIENT
  Age: 76 Year
  Sex: Female

DRUGS (5)
  1. METHOTREXATE [Interacting]
     Active Substance: METHOTREXATE
     Indication: Rheumatoid arthritis
     Dosage: 7.5 MILLIGRAM, QW
     Route: 065
  2. SULFAMETHOXAZOLE\TRIMETHOPRIM [Interacting]
     Active Substance: SULFAMETHOXAZOLE\TRIMETHOPRIM
     Indication: Urinary tract infection
     Dosage: UNK
     Route: 065
  3. METAMIZOLE SODIUM [Interacting]
     Active Substance: METAMIZOLE SODIUM
     Indication: Pain prophylaxis
     Dosage: UNK
     Route: 065
  4. METAMIZOLE MAGNESIUM [Interacting]
     Active Substance: METAMIZOLE MAGNESIUM
     Indication: Pain
     Dosage: UNK
     Route: 065
  5. FLUCLOXACILLIN [Concomitant]
     Active Substance: FLUCLOXACILLIN
     Indication: Staphylococcal sepsis
     Dosage: UNK
     Route: 065

REACTIONS (16)
  - Anaemia [Unknown]
  - Pallor [Unknown]
  - Thrombocytopenia [Recovering/Resolving]
  - Skin lesion [Recovering/Resolving]
  - Hypoalbuminaemia [Unknown]
  - Toxicity to various agents [Recovered/Resolved]
  - Pancytopenia [Recovering/Resolving]
  - Mouth ulceration [Unknown]
  - Renal impairment [Unknown]
  - Chronic kidney disease [Unknown]
  - Urinary tract infection [Unknown]
  - Leukopenia [Recovering/Resolving]
  - Lip ulceration [Unknown]
  - Pyrexia [Unknown]
  - Drug interaction [Recovering/Resolving]
  - Condition aggravated [Recovering/Resolving]
